FAERS Safety Report 5604923-7 (Version None)
Quarter: 2008Q1

REPORT INFORMATION
  Report Type: 
  Country: None (occurrence: None)
  Receive Date: 20080128
  Receipt Date: 20080118
  Transmission Date: 20080703
  Serious: No
  Sender: FDA-Public Use
  Company Number: US-BOEHRINGER INGELHEIM PHARMACEUTICALS, INC.-2008-BP-00921BP

PATIENT
  Sex: Male

DRUGS (4)
  1. FLOMAX [Suspect]
     Indication: PROSTATE INFECTION
     Route: 048
     Dates: start: 20080110
  2. COUMADIN [Concomitant]
     Indication: BLOOD DISORDER
  3. ZOCOR [Concomitant]
  4. ANTIBIOTIC (UNSPECIFIED) [Concomitant]
     Indication: INFECTION

REACTIONS (2)
  - SEMEN VOLUME DECREASED [None]
  - SINUS CONGESTION [None]
